FAERS Safety Report 6968219-3 (Version None)
Quarter: 2010Q3

REPORT INFORMATION
  Report Type: 
  Country: None (occurrence: None)
  Receive Date: 20100907
  Receipt Date: 20100830
  Transmission Date: 20110219
  Serious: Yes (Hospitalization)
  Sender: FDA-Public Use
  Company Number: JP-ROCHE-691355

PATIENT
  Sex: Male

DRUGS (5)
  1. AVASTIN [Suspect]
     Indication: LARGE INTESTINE CARCINOMA
     Route: 041
     Dates: start: 20100127, end: 20100217
  2. XELODA [Suspect]
     Indication: LARGE INTESTINE CARCINOMA
     Dosage: DRUG NAME: XELODA 300, DOSAGE IS UNCERTAIN.
     Route: 048
  3. XELODA [Suspect]
     Dosage: DRUG NAME: XELODA 300, DOSAGE IS UNCERTAIN.
     Route: 048
     Dates: start: 20100324, end: 20100501
  4. NAIXAN [Suspect]
     Indication: PRODUCT USED FOR UNKNOWN INDICATION
     Route: 048
  5. ELPLAT [Concomitant]
     Dosage: DOSAGE IS UNCERTAIN.
     Route: 041

REACTIONS (1)
  - GASTRIC ULCER HAEMORRHAGE [None]
